FAERS Safety Report 17664152 (Version 4)
Quarter: 2020Q2

REPORT INFORMATION
  Report Type: Report from Study
  Country: JP (occurrence: JP)
  Receive Date: 20200414
  Receipt Date: 20200609
  Transmission Date: 20200713
  Serious: Yes (Hospitalization)
  Sender: FDA-Public Use
  Company Number: JP-ROCHE-2543920

PATIENT
  Age: 54 Year
  Sex: Female
  Weight: 48.6 kg

DRUGS (122)
  1. OBINUTUZUMAB. [Suspect]
     Active Substance: OBINUTUZUMAB
     Indication: B-CELL LYMPHOMA
     Dosage: 1000 MG IV INFUSION, ADMINISTERED ON DAY 1, 8 AND 15 DURING CYCLE 1, AND ON DAY 1 OF SUBSEQUENT CYCL
     Route: 042
     Dates: start: 20190626
  2. DEXART [Concomitant]
     Active Substance: DEXAMETHASONE SODIUM PHOSPHATE
     Dosage: CYCLE 1 DAY 15?START TIME: 10:52?END TIME: 11:19
     Route: 042
     Dates: start: 20190711, end: 20190711
  3. ALOXI [Concomitant]
     Active Substance: PALONOSETRON HYDROCHLORIDE
     Dosage: INFUSION BAG
     Route: 042
     Dates: start: 20190627, end: 20190628
  4. SODIUM PICOSULFATE [Concomitant]
     Active Substance: SODIUM PICOSULFATE
     Route: 065
     Dates: start: 20191213, end: 20200205
  5. SUCRODE [Concomitant]
     Indication: LYMPHORRHOEA
     Route: 065
     Dates: start: 20190823, end: 20190919
  6. ADETPHOS [Concomitant]
     Active Substance: ADENOSINE TRIPHOSPHATE
     Indication: DEAFNESS NEUROSENSORY
     Dosage: KOWA GARNULE 10 %
     Route: 065
     Dates: start: 20190808, end: 20190815
  7. CALONAL [Concomitant]
     Active Substance: ACETAMINOPHEN
     Indication: BACK PAIN
     Route: 065
     Dates: start: 20191022, end: 20191022
  8. OXYCODONE [Concomitant]
     Active Substance: OXYCODONE
     Route: 065
     Dates: start: 20200305, end: 20200305
  9. LYRICA [Concomitant]
     Active Substance: PREGABALIN
     Route: 065
     Dates: start: 20200214, end: 20200218
  10. MILTAX [Concomitant]
     Active Substance: VIDARABINE
     Route: 065
     Dates: start: 20200204, end: 20200316
  11. KCL [Concomitant]
     Active Substance: POTASSIUM CHLORIDE
     Route: 065
     Dates: start: 20200209, end: 20200209
  12. ACTOSIN [BUCLADESINE SODIUM] [Concomitant]
     Route: 065
     Dates: start: 20200214, end: 20200228
  13. ROZEREM [Concomitant]
     Active Substance: RAMELTEON
     Route: 065
     Dates: start: 20200218
  14. MEROPENEM. [Concomitant]
     Active Substance: MEROPENEM
     Route: 042
     Dates: start: 20200210, end: 20200212
  15. VANCOMYCIN [Concomitant]
     Active Substance: VANCOMYCIN
     Route: 042
     Dates: start: 20200210, end: 20200212
  16. VICCILLIN [AMPICILLIN] [Concomitant]
     Active Substance: AMPICILLIN
     Route: 042
     Dates: start: 20200210, end: 20200212
  17. PREDONINE [Concomitant]
     Active Substance: PREDNISOLONE
     Route: 042
     Dates: start: 20191214, end: 20200201
  18. ENDOXAN [CYCLOPHOSPHAMIDE] [Concomitant]
     Active Substance: CYCLOPHOSPHAMIDE
     Route: 042
     Dates: start: 20191116, end: 20200129
  19. FULMETA [Concomitant]
     Active Substance: MOMETASONE
     Indication: ECZEMA
     Route: 065
     Dates: start: 20190304
  20. PROCYLIN [Concomitant]
     Active Substance: BERAPROST SODIUM
     Indication: DEAFNESS NEUROSENSORY
     Route: 065
     Dates: start: 20190808, end: 20190815
  21. VOLTAREN [DICLOFENAC] [Concomitant]
     Active Substance: DICLOFENAC SODIUM
     Route: 065
     Dates: start: 20191114
  22. CALONAL [Concomitant]
     Active Substance: ACETAMINOPHEN
     Dosage: CYCLE 2 DAY 1?START TIME:10:13?END TIME: 10:13
     Route: 048
     Dates: start: 20190725, end: 20190725
  23. EVE A [Concomitant]
     Active Substance: APRONALIDE\CAFFEINE\IBUPROFEN
     Indication: BACK PAIN
     Route: 065
     Dates: start: 20191106
  24. OXYCODONE [Concomitant]
     Active Substance: OXYCODONE
     Route: 048
     Dates: start: 20191210, end: 20191212
  25. OXYCODONE [Concomitant]
     Active Substance: OXYCODONE
     Route: 065
     Dates: start: 20200304, end: 20200304
  26. DEXCHLORPHENIRAMINE MALEATE. [Concomitant]
     Active Substance: DEXCHLORPHENIRAMINE MALEATE
     Dosage: CYCLE 1 DAY 8?START TIME: 10:20?END TIME: 10:20
     Route: 048
     Dates: start: 20190703, end: 20190703
  27. KCL [Concomitant]
     Active Substance: POTASSIUM CHLORIDE
     Route: 065
     Dates: start: 20200211, end: 20200211
  28. OXINORM [OXYCODONE HYDROCHLORIDE] [Concomitant]
     Active Substance: OXYCODONE HYDROCHLORIDE
     Route: 065
     Dates: start: 20200226, end: 20200227
  29. KARY UNI [Concomitant]
     Active Substance: PIRENOXINE
     Indication: CATARACT
     Route: 047
     Dates: start: 2014
  30. DEXART [Concomitant]
     Active Substance: DEXAMETHASONE SODIUM PHOSPHATE
     Dosage: CYCLE 1 DAY 1 ?START TIME: 09:26?END TIME: 10:09
     Route: 042
     Dates: start: 20190626, end: 20190626
  31. DEXART [Concomitant]
     Active Substance: DEXAMETHASONE SODIUM PHOSPHATE
     Dosage: CYCLE 2 DAY 1?START TIME: 10:16?END TIME: 10:58
     Route: 042
     Dates: start: 20190725, end: 20190725
  32. DEXART [Concomitant]
     Active Substance: DEXAMETHASONE SODIUM PHOSPHATE
     Dosage: CYCLE 3 DAY 1?START TIME: 10:25?END TIME: 10:55
     Route: 042
     Dates: start: 20190822, end: 20190822
  33. SENNOSIDE [SENNOSIDE A+B] [Concomitant]
     Active Substance: SENNOSIDES A AND B
     Route: 065
     Dates: start: 20191209
  34. CALONAL [Concomitant]
     Active Substance: ACETAMINOPHEN
     Dosage: CYCLE 5 DAY 1?START TIME:11:35?END TIME: 11:35
     Route: 048
     Dates: start: 20191004, end: 20191004
  35. CALONAL [Concomitant]
     Active Substance: ACETAMINOPHEN
     Dosage: CYCLE 6 DAY 1?START TIME:10:05?END TIME: 10:05
     Route: 048
     Dates: start: 20191121, end: 20191121
  36. DEXCHLORPHENIRAMINE MALEATE. [Concomitant]
     Active Substance: DEXCHLORPHENIRAMINE MALEATE
     Dosage: CYCLE 2 DAY 1?START TIME: 10:13?END TIME: 10:13
     Route: 048
     Dates: start: 20190725, end: 20190725
  37. DEXCHLORPHENIRAMINE MALEATE. [Concomitant]
     Active Substance: DEXCHLORPHENIRAMINE MALEATE
     Dosage: CYCLE 3 DAY 1?START TIME: 10:25?END TIME: 10:25
     Route: 048
     Dates: start: 20190822, end: 20190822
  38. LANSOPRAZOLE. [Concomitant]
     Active Substance: LANSOPRAZOLE
     Route: 065
     Dates: start: 20191214
  39. PEGFILGRASTIM [Concomitant]
     Active Substance: PEGFILGRASTIM
     Route: 065
     Dates: start: 20200109, end: 20200109
  40. KCL [Concomitant]
     Active Substance: POTASSIUM CHLORIDE
     Route: 065
     Dates: start: 20200212, end: 20200212
  41. SERENACE [Concomitant]
     Active Substance: HALOPERIDOL
     Route: 065
     Dates: start: 20200208, end: 20200225
  42. ONCOVIN [Concomitant]
     Active Substance: VINCRISTINE SULFATE
     Route: 042
     Dates: start: 20191216, end: 20200129
  43. OXINORM [OXYCODONE HYDROCHLORIDE] [Concomitant]
     Active Substance: OXYCODONE HYDROCHLORIDE
     Indication: BACK PAIN
     Route: 065
     Dates: start: 20190611, end: 20190628
  44. DAIPHEN [Concomitant]
     Active Substance: SULFAMETHOXAZOLE\TRIMETHOPRIM
     Route: 065
     Dates: start: 20190627
  45. ALOXI [Concomitant]
     Active Substance: PALONOSETRON HYDROCHLORIDE
     Dosage: INFUSION BAG
     Route: 042
     Dates: start: 20191116, end: 20200129
  46. MILTAX [Concomitant]
     Active Substance: VIDARABINE
     Indication: NECK PAIN
     Route: 065
     Dates: start: 20190629
  47. VOLTAREN [DICLOFENAC] [Concomitant]
     Active Substance: DICLOFENAC SODIUM
     Indication: BACK PAIN
     Route: 065
     Dates: start: 20191021, end: 20191022
  48. OXYCODONE [Concomitant]
     Active Substance: OXYCODONE
     Route: 065
     Dates: start: 20191212, end: 20191212
  49. OXYCODONE [Concomitant]
     Active Substance: OXYCODONE
     Route: 065
     Dates: start: 20200226, end: 20200226
  50. SYMPROIC [Concomitant]
     Active Substance: NALDEMEDINE
     Route: 065
     Dates: start: 20191205, end: 20200208
  51. EURAX [Concomitant]
     Active Substance: CROTAMITON
     Indication: PRURITUS
     Route: 065
     Dates: start: 20191205, end: 20200106
  52. DEXCHLORPHENIRAMINE MALEATE. [Concomitant]
     Active Substance: DEXCHLORPHENIRAMINE MALEATE
     Indication: PREMEDICATION
     Dosage: CYCLE 1 DAY 1?START TIME: 10:23?END TIME: 10:23
     Route: 048
     Dates: start: 20190626, end: 20190626
  53. DEXCHLORPHENIRAMINE MALEATE. [Concomitant]
     Active Substance: DEXCHLORPHENIRAMINE MALEATE
     Dosage: CYCLE 1 DAY 15?START TIME: 10:44?END TIME: 10:44
     Route: 048
     Dates: start: 20190711, end: 20190711
  54. FLUCONAZOLE. [Concomitant]
     Active Substance: FLUCONAZOLE
     Route: 065
     Dates: start: 20191230, end: 20200106
  55. CEFEPIME DIHYDROCHLORIDE [Concomitant]
     Active Substance: CEFEPIME HYDROCHLORIDE
     Route: 042
     Dates: start: 20200207, end: 20200210
  56. OXINORM [OXYCODONE HYDROCHLORIDE] [Concomitant]
     Active Substance: OXYCODONE HYDROCHLORIDE
     Route: 065
     Dates: start: 20200304, end: 20200309
  57. OXINORM [OXYCODONE HYDROCHLORIDE] [Concomitant]
     Active Substance: OXYCODONE HYDROCHLORIDE
     Route: 065
     Dates: start: 20200309, end: 20200309
  58. DIQUAS [Concomitant]
     Active Substance: DIQUAFOSOL TETRASODIUM
     Indication: DRY EYE
     Route: 047
     Dates: start: 2014
  59. DEXART [Concomitant]
     Active Substance: DEXAMETHASONE SODIUM PHOSPHATE
     Route: 065
     Dates: start: 20190726, end: 20190726
  60. DEXART [Concomitant]
     Active Substance: DEXAMETHASONE SODIUM PHOSPHATE
     Dosage: CYCLE 1 DAY 8 ?START TIME: 09:27?END TIME: 09:58
     Route: 042
     Dates: start: 20190703, end: 20190703
  61. DEXART [Concomitant]
     Active Substance: DEXAMETHASONE SODIUM PHOSPHATE
     Dosage: CYCLE 4 DAY 1?START TIME: 09:59?END TIME: 10:37
     Route: 042
     Dates: start: 20190919, end: 20190919
  62. DEXART [Concomitant]
     Active Substance: DEXAMETHASONE SODIUM PHOSPHATE
     Dosage: CYCLE 5 DAY 1?START TIME: 11:42?END TIME: 12:12
     Route: 042
     Dates: start: 20191024, end: 20191024
  63. ALOXI [Concomitant]
     Active Substance: PALONOSETRON HYDROCHLORIDE
     Dosage: INFUSION BAG
     Route: 042
     Dates: start: 20190822, end: 20191121
  64. MILTAX [Concomitant]
     Active Substance: VIDARABINE
     Indication: BACK PAIN
  65. CALONAL [Concomitant]
     Active Substance: ACETAMINOPHEN
     Dosage: CYCLE 1 DAY 15?START TIME:11:19?END TIME: 11:19
     Route: 048
     Dates: start: 20190711, end: 20190711
  66. OXYCODONE [Concomitant]
     Active Substance: OXYCODONE
     Indication: BACK PAIN
     Route: 048
     Dates: start: 20191205, end: 20191210
  67. OXYCODONE [Concomitant]
     Active Substance: OXYCODONE
     Route: 065
     Dates: start: 20191223, end: 20191225
  68. LYRICA [Concomitant]
     Active Substance: PREGABALIN
     Route: 065
     Dates: start: 20200218, end: 20200219
  69. TARLIGE [Concomitant]
     Active Substance: MIROGABALIN BESYLATE
     Route: 065
     Dates: start: 20200217, end: 20200218
  70. FILGRASTIM [Concomitant]
     Active Substance: FILGRASTIM
     Route: 065
     Dates: start: 20200206, end: 20200214
  71. MEYLON [Concomitant]
     Active Substance: SODIUM BICARBONATE
     Route: 065
     Dates: start: 20200106, end: 20200129
  72. KCL [Concomitant]
     Active Substance: POTASSIUM CHLORIDE
     Route: 065
     Dates: start: 20200208, end: 20200211
  73. RITUXIMAB. [Concomitant]
     Active Substance: RITUXIMAB
     Route: 041
     Dates: start: 20191213, end: 20200129
  74. PREDONINE [Concomitant]
     Active Substance: PREDNISOLONE
     Route: 042
     Dates: start: 20191216, end: 20200129
  75. PREDONINE [Concomitant]
     Active Substance: PREDNISOLONE
     Route: 042
     Dates: start: 20200202, end: 20200203
  76. OXINORM [OXYCODONE HYDROCHLORIDE] [Concomitant]
     Active Substance: OXYCODONE HYDROCHLORIDE
     Indication: BACK PAIN
     Route: 065
     Dates: start: 20191212, end: 20191225
  77. DEXART [Concomitant]
     Active Substance: DEXAMETHASONE SODIUM PHOSPHATE
     Route: 065
     Dates: start: 20190823, end: 20191122
  78. DEXART [Concomitant]
     Active Substance: DEXAMETHASONE SODIUM PHOSPHATE
     Dosage: CYCLE 6 DAY 1?START TIME: 10:06?END TIME: 10:40
     Route: 042
     Dates: start: 20191121, end: 20191121
  79. SENNOSIDE [SENNOSIDE A+B] [Concomitant]
     Active Substance: SENNOSIDES A AND B
     Indication: CONSTIPATION
     Route: 065
     Dates: start: 20190630, end: 20190707
  80. VOLTAREN [DICLOFENAC] [Concomitant]
     Active Substance: DICLOFENAC SODIUM
     Indication: BACK PAIN
     Route: 065
     Dates: start: 20191017, end: 20191020
  81. CALONAL [Concomitant]
     Active Substance: ACETAMINOPHEN
     Dosage: CYCLE 3 DAY 1?START TIME:10:25?END TIME: 10:25
     Route: 048
     Dates: start: 20190822, end: 20190822
  82. OXYCODONE [Concomitant]
     Active Substance: OXYCODONE
     Route: 065
     Dates: start: 20200101, end: 20200119
  83. OXYCODONE [Concomitant]
     Active Substance: OXYCODONE
     Route: 065
     Dates: start: 20200227, end: 20200228
  84. OXYCODONE [Concomitant]
     Active Substance: OXYCODONE
     Route: 065
     Dates: start: 20200302, end: 20200303
  85. DEXCHLORPHENIRAMINE MALEATE. [Concomitant]
     Active Substance: DEXCHLORPHENIRAMINE MALEATE
     Dosage: CYCLE 6 DAY 1?START TIME: 10:05?END TIME: 10:05
     Route: 048
     Dates: start: 20191121, end: 20191121
  86. ZOPICLONE [Concomitant]
     Active Substance: ZOPICLONE
     Route: 065
     Dates: start: 20191215
  87. FILGRASTIM [Concomitant]
     Active Substance: FILGRASTIM
     Route: 065
     Dates: start: 20191223, end: 20191228
  88. HYDROCORTONE [HYDROCORTISONE] [Concomitant]
     Route: 065
     Dates: start: 20200106, end: 20200129
  89. ZYPREXA [Concomitant]
     Active Substance: OLANZAPINE
     Route: 065
     Dates: start: 20191220, end: 20200207
  90. OXINORM [OXYCODONE HYDROCHLORIDE] [Concomitant]
     Active Substance: OXYCODONE HYDROCHLORIDE
     Route: 065
     Dates: start: 20191225, end: 20200201
  91. ALOXI [Concomitant]
     Active Substance: PALONOSETRON HYDROCHLORIDE
     Dosage: INFUSION BAG
     Route: 042
     Dates: start: 20190725, end: 20190725
  92. SODIUM PICOSULFATE [Concomitant]
     Active Substance: SODIUM PICOSULFATE
     Indication: CONSTIPATION
     Dosage: SOLUTION
     Route: 065
     Dates: start: 20190630, end: 20190630
  93. VOALLA [Concomitant]
     Indication: LYMPHORRHOEA
     Route: 065
     Dates: start: 20190725, end: 20190725
  94. CALONAL [Concomitant]
     Active Substance: ACETAMINOPHEN
     Indication: PREMEDICATION
     Dosage: CYCLE 1 DAY 1?START TIME:10:23?END TIME: 10:23
     Route: 048
     Dates: start: 20190626, end: 20190626
  95. CALONAL [Concomitant]
     Active Substance: ACETAMINOPHEN
     Dosage: CYCLE 1 DAY 8?START TIME:10:20?END TIME: 10:20
     Route: 048
     Dates: start: 20190703, end: 20190703
  96. OXYCODONE [Concomitant]
     Active Substance: OXYCODONE
     Route: 065
     Dates: start: 20191225, end: 20200101
  97. OXYCODONE [Concomitant]
     Active Substance: OXYCODONE
     Route: 065
     Dates: start: 20200229, end: 20200229
  98. FEXOFENADINE HYDROCHLORIDE. [Concomitant]
     Active Substance: FEXOFENADINE HYDROCHLORIDE
     Indication: PRURITUS
     Route: 065
     Dates: start: 20191205, end: 20200106
  99. LYRICA [Concomitant]
     Active Substance: PREGABALIN
     Route: 065
     Dates: start: 20200220, end: 20200223
  100. POLARAMINE [Concomitant]
     Active Substance: DEXCHLORPHENIRAMINE MALEATE
     Route: 065
     Dates: start: 20200106, end: 20200129
  101. KCL [Concomitant]
     Active Substance: POTASSIUM CHLORIDE
     Route: 065
     Dates: start: 20200202, end: 20200206
  102. PRIMPERAN [Concomitant]
     Active Substance: METOCLOPRAMIDE HYDROCHLORIDE
     Route: 065
     Dates: start: 20191120, end: 20200210
  103. ADRIACIN [Concomitant]
     Active Substance: DOXORUBICIN HYDROCHLORIDE
     Route: 042
     Dates: start: 20191216, end: 20200129
  104. BENDAMUSTINE [Suspect]
     Active Substance: BENDAMUSTINE
     Indication: B-CELL LYMPHOMA
     Dosage: ADMINISTERED ON DAYS 1 AND 2 FOR CYCLES 1-6 AT A DOSE OF 90 MG/M2/DAY, FOR SIX 28-DAY CYCLES.?DATE O
     Route: 042
     Dates: start: 20190627
  105. OXINORM [OXYCODONE HYDROCHLORIDE] [Concomitant]
     Active Substance: OXYCODONE HYDROCHLORIDE
     Route: 065
     Dates: start: 20200309, end: 20200309
  106. TEARBALANCE [Concomitant]
     Active Substance: HYALURONATE SODIUM
     Indication: DRY EYE
     Route: 047
     Dates: start: 2014
  107. RESTAMINE [Concomitant]
     Indication: ECZEMA
     Dosage: KOWA CREAM
     Route: 065
     Dates: start: 20190303
  108. DEXART [Concomitant]
     Active Substance: DEXAMETHASONE SODIUM PHOSPHATE
     Indication: PREMEDICATION
     Route: 065
     Dates: start: 20190627, end: 20190628
  109. MAGMITT [Concomitant]
     Active Substance: MAGNESIUM OXIDE
     Indication: CONSTIPATION
     Route: 065
     Dates: start: 20190628, end: 20190709
  110. METHYCOBAL [Concomitant]
     Active Substance: METHYLCOBALAMIN
     Indication: DEAFNESS NEUROSENSORY
     Route: 065
     Dates: start: 20190808, end: 20190815
  111. LOXONIN [Concomitant]
     Active Substance: LOXOPROFEN SODIUM
     Indication: BACK PAIN
     Route: 065
     Dates: start: 20191012, end: 20191023
  112. CALONAL [Concomitant]
     Active Substance: ACETAMINOPHEN
     Dosage: CYCLE 4 DAY 1?START TIME:10:17?END TIME: 10:17
     Route: 048
     Dates: start: 20190919, end: 20190919
  113. EVE A [Concomitant]
     Active Substance: APRONALIDE\CAFFEINE\IBUPROFEN
     Indication: BACK PAIN
     Route: 065
     Dates: start: 20191023, end: 20191023
  114. OXYCODONE [Concomitant]
     Active Substance: OXYCODONE
     Route: 065
     Dates: start: 20200301, end: 20200301
  115. DEXCHLORPHENIRAMINE MALEATE. [Concomitant]
     Active Substance: DEXCHLORPHENIRAMINE MALEATE
     Dosage: CYCLE 4 DAY 1?START TIME: 10:17?END TIME: 10:17
     Route: 048
     Dates: start: 20190919, end: 20190919
  116. DEXCHLORPHENIRAMINE MALEATE. [Concomitant]
     Active Substance: DEXCHLORPHENIRAMINE MALEATE
     Dosage: CYCLE 5 DAY 1?START TIME: 11:35?END TIME: 11:35
     Route: 048
     Dates: start: 20191024, end: 20191024
  117. ACELIO [Concomitant]
     Active Substance: ACETAMINOPHEN
     Route: 042
     Dates: start: 20191230, end: 20191230
  118. MAGNESIUM SULFATE. [Concomitant]
     Active Substance: MAGNESIUM SULFATE
     Route: 065
     Dates: start: 20200219, end: 20200221
  119. HYDROXYZINE [Concomitant]
     Active Substance: HYDROXYZINE HYDROCHLORIDE
     Route: 065
     Dates: start: 20200208, end: 20200225
  120. ZYRTEC [Concomitant]
     Active Substance: CETIRIZINE HYDROCHLORIDE
     Route: 065
     Dates: start: 20200218
  121. DIPHENHYDRAMINE;DIPROPHYLLINE [Concomitant]
     Route: 065
     Dates: start: 20200206, end: 20200208
  122. KENEI ENEMA [Concomitant]
     Route: 065
     Dates: start: 20200206, end: 20200206

REACTIONS (1)
  - Herpes zoster disseminated [Recovered/Resolved]

NARRATIVE: CASE EVENT DATE: 20200131
